FAERS Safety Report 23723825 (Version 1)
Quarter: 2024Q2

REPORT INFORMATION
  Report Type: Spontaneous
  Country: US (occurrence: US)
  Receive Date: 20240409
  Receipt Date: 20240409
  Transmission Date: 20240715
  Serious: Yes (Other)
  Sender: FDA-Public Use
  Company Number: US-ABBVIE-5709432

PATIENT
  Sex: Female

DRUGS (1)
  1. REFRESH P.M. [Suspect]
     Active Substance: MINERAL OIL\PETROLATUM
     Indication: Dry eye
     Dosage: MINERAL OIL 425MG/ML;WHITE PETROLATUM 573MG/ML PF ONT
     Route: 047

REACTIONS (2)
  - Drug dependence [Unknown]
  - Off label use [Unknown]
